FAERS Safety Report 11325091 (Version 1)
Quarter: 2015Q3

REPORT INFORMATION
  Report Type: Spontaneous
  Country: AT (occurrence: AT)
  Receive Date: 20150730
  Receipt Date: 20150730
  Transmission Date: 20151125
  Serious: Yes (Hospitalization)
  Sender: FDA-Public Use
  Company Number: AT-INCYTE CORPORATION-2015IN003609

PATIENT
  Sex: Female

DRUGS (3)
  1. HYDROXYUREA. [Concomitant]
     Active Substance: HYDROXYUREA
     Indication: PRODUCT USED FOR UNKNOWN INDICATION
     Dosage: 2 DF, QD
     Route: 065
  2. CORTISONE [Concomitant]
     Active Substance: CORTISONE\HYDROCORTISONE
     Indication: PRODUCT USED FOR UNKNOWN INDICATION
     Dosage: 50 MG, UNK
     Route: 065
  3. JAKAFI [Suspect]
     Active Substance: RUXOLITINIB
     Indication: THROMBOCYTOPENIA
     Dosage: 10 MG, BID
     Route: 065

REACTIONS (13)
  - Animal bite [Recovering/Resolving]
  - Pyrexia [Recovering/Resolving]
  - Erysipelas [Recovering/Resolving]
  - Withdrawal syndrome [Recovering/Resolving]
  - Sepsis [Recovering/Resolving]
  - High density lipoprotein decreased [Unknown]
  - White blood cell count increased [Recovering/Resolving]
  - Depressed level of consciousness [Recovering/Resolving]
  - Platelet count decreased [Recovering/Resolving]
  - Pain [Recovering/Resolving]
  - Anaemia [Recovering/Resolving]
  - Inflammation [Unknown]
  - Blood count abnormal [Recovering/Resolving]
